FAERS Safety Report 22365538 (Version 5)
Quarter: 2024Q2

REPORT INFORMATION
  Report Type: Report from Study
  Country: US (occurrence: US)
  Receive Date: 20230525
  Receipt Date: 20240421
  Transmission Date: 20240716
  Serious: Yes (Other)
  Sender: FDA-Public Use
  Company Number: US-ABBVIE-4762165

PATIENT
  Sex: Female

DRUGS (2)
  1. IMBRUVICA [Suspect]
     Active Substance: IBRUTINIB
     Indication: Waldenstrom^s macroglobulinaemia
     Route: 048
     Dates: start: 20220517
  2. IMBRUVICA [Suspect]
     Active Substance: IBRUTINIB
     Indication: Waldenstrom^s macroglobulinaemia
     Route: 048

REACTIONS (33)
  - Glaucoma [Recovering/Resolving]
  - Seasonal allergy [Unknown]
  - Paranasal sinus discomfort [Not Recovered/Not Resolved]
  - Visual acuity reduced [Not Recovered/Not Resolved]
  - Dry skin [Unknown]
  - Onychoclasis [Not Recovered/Not Resolved]
  - Hypoaesthesia [Unknown]
  - Neuralgia [Unknown]
  - Paranasal sinus hyposecretion [Not Recovered/Not Resolved]
  - Dry eye [Unknown]
  - Nasal disorder [Unknown]
  - Acne [Unknown]
  - Mitral valve prolapse [Unknown]
  - Nasal abscess [Unknown]
  - Sinusitis [Unknown]
  - Increased tendency to bruise [Unknown]
  - Diarrhoea [Unknown]
  - Vision blurred [Not Recovered/Not Resolved]
  - Pain in extremity [Unknown]
  - Nail disorder [Unknown]
  - Nail discolouration [Unknown]
  - Palpitations [Unknown]
  - Dyspnoea [Unknown]
  - Onychomycosis [Unknown]
  - Exposure to toxic agent [Unknown]
  - Cellulitis [Recovering/Resolving]
  - Skin fissures [Unknown]
  - Herpes simplex [Recovering/Resolving]
  - Nausea [Not Recovered/Not Resolved]
  - Fungal skin infection [Not Recovered/Not Resolved]
  - Taste disorder [Not Recovered/Not Resolved]
  - Hordeolum [Recovered/Resolved]
  - Arrhythmia [Not Recovered/Not Resolved]

NARRATIVE: CASE EVENT DATE: 20230101
